FAERS Safety Report 14251216 (Version 2)
Quarter: 2017Q4

REPORT INFORMATION
  Report Type: Report from Study
  Country: TW (occurrence: TW)
  Receive Date: 20171205
  Receipt Date: 20171211
  Transmission Date: 20180321
  Serious: Yes (Hospitalization)
  Sender: FDA-Public Use
  Company Number: TW-ELI_LILLY_AND_COMPANY-TW201712000270

PATIENT
  Age: 62 Year
  Sex: Male
  Weight: 53 kg

DRUGS (6)
  1. CISPLATIN. [Concomitant]
     Active Substance: CISPLATIN
     Indication: TONGUE CANCER RECURRENT
     Dosage: 45 MG, UNKNOWN
     Route: 065
  2. VINCRISTIN [Concomitant]
     Active Substance: VINCRISTINE
     Indication: TONGUE CANCER RECURRENT
     Dosage: 1.5 MG, UNKNOWN
     Route: 065
  3. BLEOCIN                            /00183901/ [Concomitant]
     Active Substance: BLEOMYCIN SULFATE
     Indication: TONGUE CANCER RECURRENT
     Dosage: 15 MG, UNKNOWN
     Route: 065
  4. 5 FU [Concomitant]
     Active Substance: FLUOROURACIL
     Indication: TONGUE CANCER RECURRENT
     Dosage: 1500 MG, UNKNOWN
     Route: 065
  5. CETUXIMAB. [Suspect]
     Active Substance: CETUXIMAB
     Indication: TONGUE CANCER RECURRENT
     Dosage: 250 MG/M2, WEEKLY (1/W)
     Route: 065
     Dates: start: 20171114, end: 20171127
  6. MITOMYCIN C [Concomitant]
     Active Substance: MITOMYCIN
     Indication: TONGUE CANCER RECURRENT
     Dosage: 6 MG, UNKNOWN
     Route: 065

REACTIONS (2)
  - Off label use [Unknown]
  - White blood cell count decreased [Not Recovered/Not Resolved]

NARRATIVE: CASE EVENT DATE: 20171127
